FAERS Safety Report 20391703 (Version 2)
Quarter: 2022Q1

REPORT INFORMATION
  Report Type: Spontaneous
  Country: US (occurrence: US)
  Receive Date: 20220128
  Receipt Date: 20220317
  Transmission Date: 20220423
  Serious: No
  Sender: FDA-Public Use
  Company Number: US-009507513-2201USA007154

PATIENT
  Age: 62 Year
  Sex: Female

DRUGS (1)
  1. MOLNUPIRAVIR [Suspect]
     Active Substance: MOLNUPIRAVIR
     Indication: COVID-19 treatment
     Dosage: 1 CAPSULE EVERY 12 HOURS
     Route: 048
     Dates: start: 20220121

REACTIONS (5)
  - Cough [Unknown]
  - Pain [Unknown]
  - Feeling abnormal [Unknown]
  - Headache [Unknown]
  - Underdose [Unknown]

NARRATIVE: CASE EVENT DATE: 20220121
